FAERS Safety Report 21038085 (Version 4)
Quarter: 2022Q3

REPORT INFORMATION
  Report Type: Spontaneous
  Country: US (occurrence: US)
  Receive Date: 20220704
  Receipt Date: 20220930
  Transmission Date: 20221026
  Serious: No
  Sender: FDA-Public Use
  Company Number: US-SANOFI-01166736

PATIENT
  Age: 51 Year
  Sex: Female
  Weight: 67 kg

DRUGS (2)
  1. DUPIXENT [Suspect]
     Active Substance: DUPILUMAB
     Indication: Eczema
     Dosage: 600 MG, 1X
     Route: 058
     Dates: start: 20220602, end: 20220602
  2. DUPIXENT [Suspect]
     Active Substance: DUPILUMAB
     Dosage: 300 MG, QOW
     Route: 058
     Dates: start: 20220616, end: 2022

REACTIONS (2)
  - Eye disorder [Unknown]
  - Eye swelling [Unknown]

NARRATIVE: CASE EVENT DATE: 20220623
